FAERS Safety Report 16084194 (Version 1)
Quarter: 2019Q2

REPORT INFORMATION
  Report Type: Spontaneous
  Country: US (occurrence: US)
  Receive Date: 20190316
  Receipt Date: 20190316
  Transmission Date: 20190711
  Serious: No
  Sender: FDA-Public Use
  Company Number: None

PATIENT
  Age: 59 Year
  Sex: Male
  Weight: 112.5 kg

DRUGS (1)
  1. LOSARTAN POTASSIUM , 100MG USP [Suspect]
     Active Substance: LOSARTAN POTASSIUM
     Indication: HYPERTENSION
     Dosage: ?          QUANTITY:90 TABLET(S);?
     Route: 048
     Dates: start: 20190109, end: 20190315

REACTIONS (4)
  - Blood pressure fluctuation [None]
  - Pain [None]
  - Headache [None]
  - Recalled product administered [None]

NARRATIVE: CASE EVENT DATE: 20190315
